FAERS Safety Report 5089086-1 (Version None)
Quarter: 2006Q3

REPORT INFORMATION
  Report Type: 
  Country: None (occurrence: None)
  Receive Date: 20060822
  Receipt Date: 20060804
  Transmission Date: 20061208
  Serious: Yes (Hospitalization)
  Sender: FDA-Public Use
  Company Number: CA200608002056

PATIENT
  Age: 56 Year
  Sex: Female

DRUGS (11)
  1. FORTEO [Suspect]
     Indication: OSTEOPOROSIS
     Dosage: 20 U G, DAILY (1/D)
     Dates: start: 20051017
  2. FORTEO [Concomitant]
  3. PANTOLOC SOLVAY  (PANTOPRAZOLE SODIUM) [Concomitant]
  4. LEVOTHYROXINE SODIUM [Concomitant]
  5. FLEXERIL [Concomitant]
  6. CALCIUM (CALCIUM) [Concomitant]
  7. VITAMIN D [Concomitant]
  8. ACETAMINOPHEN [Concomitant]
  9. NOVAMOXIN (AMOXICILLIN TRIHYDRATE) [Concomitant]
  10. NOVOHYDRAZIDE (HYDROCHLOROTHIAZIDE) [Concomitant]
  11. LASIX (FUROSEMIDE, FUROSEMIDE SODIUM) [Concomitant]

REACTIONS (15)
  - CHEST DISCOMFORT [None]
  - CHILLS [None]
  - DIARRHOEA [None]
  - DIZZINESS [None]
  - DRY MOUTH [None]
  - FATIGUE [None]
  - FEELING ABNORMAL [None]
  - HEART RATE INCREASED [None]
  - HEART RATE IRREGULAR [None]
  - MUSCLE SPASMS [None]
  - NAUSEA [None]
  - OEDEMA PERIPHERAL [None]
  - PLEURAL EFFUSION [None]
  - PNEUMONIA [None]
  - STOMACH DISCOMFORT [None]
